FAERS Safety Report 17962549 (Version 1)
Quarter: 2020Q2

REPORT INFORMATION
  Report Type: Spontaneous
  Country: US (occurrence: US)
  Receive Date: 20200630
  Receipt Date: 20200630
  Transmission Date: 20200714
  Serious: No
  Sender: FDA-Public Use
  Company Number: US-SA-2020SA167070

PATIENT

DRUGS (2)
  1. ALLEGRA ALLERGY [Suspect]
     Active Substance: FEXOFENADINE HYDROCHLORIDE
     Indication: HYPERSENSITIVITY
     Dosage: 180 MG, QD WHEN NECESSARY
     Route: 065
  2. ACETAMINOPHEN. [Suspect]
     Active Substance: ACETAMINOPHEN
     Indication: ARTHRITIS
     Dosage: UNK
     Route: 065

REACTIONS (2)
  - Blister [Not Recovered/Not Resolved]
  - Rash [Not Recovered/Not Resolved]
